FAERS Safety Report 21292810 (Version 2)
Quarter: 2022Q3

REPORT INFORMATION
  Report Type: Spontaneous
  Country: EG (occurrence: EG)
  Receive Date: 20220905
  Receipt Date: 20220914
  Transmission Date: 20221026
  Serious: Yes (Hospitalization, Disabling)
  Sender: FDA-Public Use
  Company Number: EG-NOVOPROD-953316

PATIENT
  Age: 704 Month
  Sex: Female
  Weight: 100 kg

DRUGS (7)
  1. LANTUS [Concomitant]
     Active Substance: INSULIN GLARGINE
     Indication: Diabetes mellitus
     Dosage: 27 IU, QD (AT EVENING - FROM 20 DAYS)
     Route: 058
  2. CIDOPHAGE [Concomitant]
     Indication: Body fat disorder
     Dosage: 1 TABLET WITHIN LUNCH FROM 20 DAYS
     Route: 048
  3. ACTRAPID [Suspect]
     Active Substance: INSULIN HUMAN
     Indication: Diabetes mellitus
     Dosage: 10 IU, TID (BREAKFAST, LUNCH, AFTER DINNER)
     Route: 058
     Dates: start: 20220801
  4. ACTRAPID [Suspect]
     Active Substance: INSULIN HUMAN
     Dosage: 5 IU WHEN BGL WAS 250 MG/DL
     Route: 058
  5. ACTRAPID [Suspect]
     Active Substance: INSULIN HUMAN
     Dosage: 10 IU WHEN BGL WAS 300 MG/DL
     Route: 058
  6. ACTRAPID [Suspect]
     Active Substance: INSULIN HUMAN
     Dosage: 15 IU WHEN BGL WAS 350 MG/DL
     Route: 058
     Dates: end: 20220820
  7. PLAVIX [Concomitant]
     Active Substance: CLOPIDOGREL BISULFATE
     Indication: Anticoagulant therapy
     Dosage: 1 TAB/DAY
     Route: 048

REACTIONS (3)
  - Cerebrovascular accident [Not Recovered/Not Resolved]
  - Hyperglycaemia [Not Recovered/Not Resolved]
  - Drug ineffective [Not Recovered/Not Resolved]

NARRATIVE: CASE EVENT DATE: 20220801
